FAERS Safety Report 9685049 (Version 1)
Quarter: 2013Q4

REPORT INFORMATION
  Report Type: Report from Study
  Country: CA (occurrence: CA)
  Receive Date: 20131113
  Receipt Date: 20131113
  Transmission Date: 20140711
  Serious: Yes (Hospitalization)
  Sender: FDA-Public Use
  Company Number: CA-JNJFOC-20131103186

PATIENT
  Age: 62 Year
  Sex: Female
  Weight: 61.6 kg

DRUGS (8)
  1. REMICADE [Suspect]
     Indication: CROHN^S DISEASE
     Dosage: ONCE EVERY 6-8 WEEKS
     Route: 042
     Dates: start: 20130911
  2. REMICADE [Suspect]
     Indication: CROHN^S DISEASE
     Dosage: ONCE EVERY 6-8 WEEKS
     Route: 042
     Dates: start: 20040301
  3. EFFEXOR [Concomitant]
     Route: 065
  4. SYNTHROID [Concomitant]
     Route: 065
  5. REMERON [Concomitant]
     Route: 065
  6. HYDROMORPHONE [Concomitant]
     Route: 065
  7. HCTZ [Concomitant]
     Route: 065
  8. STEROIDS NOS [Concomitant]
     Route: 065

REACTIONS (2)
  - Escherichia sepsis [Recovered/Resolved]
  - Nephrolithiasis [Recovered/Resolved]
